FAERS Safety Report 4389123-3 (Version None)
Quarter: 2004Q2

REPORT INFORMATION
  Report Type: 
  Country: None (occurrence: None)
  Receive Date: 20040628
  Receipt Date: 20040614
  Transmission Date: 20050107
  Serious: Yes (Other)
  Sender: FDA-Public Use
  Company Number: 196692

PATIENT
  Age: 57 Year
  Sex: Female
  Weight: 44.4525 kg

DRUGS (3)
  1. AVONEX [Suspect]
     Indication: MULTIPLE SCLEROSIS
     Dosage: 30 MCG QW IM
     Route: 030
     Dates: start: 19960101, end: 19970101
  2. VALIUM [Concomitant]
  3. REGLAN [Concomitant]

REACTIONS (1)
  - HEPATOCELLULAR DAMAGE [None]
